FAERS Safety Report 13697093 (Version 1)
Quarter: 2017Q2

REPORT INFORMATION
  Report Type: Spontaneous
  Country: US (occurrence: US)
  Receive Date: 20170627
  Receipt Date: 20170627
  Transmission Date: 20170830
  Serious: Yes (Disabling)
  Sender: FDA-Public Use
  Company Number: None

PATIENT
  Age: 41 Year
  Sex: Male
  Weight: 63 kg

DRUGS (9)
  1. FLONASE [Concomitant]
     Active Substance: FLUTICASONE PROPIONATE
  2. BOTOX [Suspect]
     Active Substance: ONABOTULINUMTOXINA
     Indication: HEADACHE
     Route: 055
     Dates: start: 20170531
  3. CLARITIN [Concomitant]
     Active Substance: LORATADINE
  4. COQ10 [Concomitant]
     Active Substance: UBIDECARENONE
  5. FAMCYCLOVIR [Concomitant]
     Active Substance: FAMCICLOVIR
  6. VITAMIN D [Concomitant]
     Active Substance: CHOLECALCIFEROL
  7. SINGULAIR [Concomitant]
     Active Substance: MONTELUKAST SODIUM
  8. CEFALY [Concomitant]
  9. MULTIVITAMIN [Concomitant]
     Active Substance: VITAMINS

REACTIONS (10)
  - Insomnia [None]
  - Bedridden [None]
  - Depression [None]
  - Impaired work ability [None]
  - Fatigue [None]
  - Nausea [None]
  - Loss of personal independence in daily activities [None]
  - Anxiety [None]
  - Asthenia [None]
  - Decreased appetite [None]

NARRATIVE: CASE EVENT DATE: 20170602
